FAERS Safety Report 6348240-9 (Version None)
Quarter: 2009Q3

REPORT INFORMATION
  Report Type: 
  Country: None (occurrence: None)
  Receive Date: 20090910
  Receipt Date: 20090902
  Transmission Date: 20100115
  Serious: Yes (Hospitalization)
  Sender: FDA-Public Use
  Company Number: JP-ABBOTT-09P-087-0595270-00

PATIENT
  Sex: Male

DRUGS (1)
  1. LEUPLIN FOR INJECTION 3.75 MG [Suspect]
     Indication: PROSTATE CANCER
     Route: 058

REACTIONS (1)
  - HEPATIC FUNCTION ABNORMAL [None]
